FAERS Safety Report 4389370-0 (Version None)
Quarter: 2004Q3

REPORT INFORMATION
  Report Type: 
  Country: None (occurrence: None)
  Receive Date: 20040701
  Receipt Date: 20040701
  Transmission Date: 20050211
  Serious: Yes (Hospitalization)
  Sender: FDA-Public Use
  Company Number: None

PATIENT
  Sex: Male
  Weight: 65 kg

DRUGS (2)
  1. DIGOXIN [Suspect]
     Indication: ATRIAL FIBRILLATION
     Dosage: 0.25 MG PO QD
     Route: 048
  2. DILTIAZEM [Concomitant]

REACTIONS (3)
  - BRADYCARDIA [None]
  - DELIRIUM [None]
  - DRUG TOXICITY [None]
